FAERS Safety Report 9722886 (Version 2)
Quarter: 2014Q1

REPORT INFORMATION
  Report Type: Spontaneous
  Country: US (occurrence: US)
  Receive Date: 20131202
  Receipt Date: 20140102
  Transmission Date: 20141002
  Serious: No
  Sender: FDA-Public Use
  Company Number: US-ASTELLAS-2013US012410

PATIENT
  Sex: Female

DRUGS (2)
  1. PROGRAF [Suspect]
     Indication: RENAL TRANSPLANT
     Dosage: 21 MG, UID/QD
     Route: 048
     Dates: start: 20130618
  2. PROGRAF [Suspect]
     Indication: PANCREAS TRANSPLANT

REACTIONS (1)
  - Off label use [Unknown]
